FAERS Safety Report 19865431 (Version 3)
Quarter: 2023Q1

REPORT INFORMATION
  Report Type: Spontaneous
  Country: JP (occurrence: JP)
  Receive Date: 20210921
  Receipt Date: 20230126
  Transmission Date: 20230417
  Serious: Yes (Other)
  Sender: FDA-Public Use
  Company Number: JP-BRISTOL-MYERS SQUIBB COMPANY-BMS-2021-066028

PATIENT
  Age: 72 Year
  Sex: Male

DRUGS (8)
  1. ORENCIA [Suspect]
     Active Substance: ABATACEPT
     Indication: Rheumatoid arthritis
     Dosage: UNK UNK, QWK
     Route: 041
     Dates: start: 20210628
  2. ORENCIA [Suspect]
     Active Substance: ABATACEPT
     Indication: Rheumatoid arthritis
     Dosage: UNK UNK, QWK
     Route: 058
     Dates: start: 20210628
  3. ORENCIA [Suspect]
     Active Substance: ABATACEPT
     Dosage: UNK UNK, QWK
     Route: 058
     Dates: start: 20230117
  4. METHOTREXATE [Concomitant]
     Active Substance: METHOTREXATE
     Indication: Product used for unknown indication
     Dosage: UNK
  5. AZULFIDINE [Concomitant]
     Active Substance: SULFASALAZINE
     Indication: Product used for unknown indication
     Dosage: UNK
  6. LEVOTHYROXINE [Concomitant]
     Active Substance: LEVOTHYROXINE
     Indication: Product used for unknown indication
     Dosage: UNK
  7. IGURATIMOD [Concomitant]
     Active Substance: IGURATIMOD
     Indication: Product used for unknown indication
     Dosage: UNK
  8. METHANIAZIDE SODIUM [Concomitant]
     Active Substance: METHANIAZIDE SODIUM
     Indication: Product used for unknown indication
     Dosage: UNK

REACTIONS (13)
  - Haemorrhage subcutaneous [Unknown]
  - Pyrexia [Unknown]
  - Cough [Unknown]
  - Dyspnoea [Unknown]
  - Malaise [Unknown]
  - Infection [Unknown]
  - Injection site swelling [Unknown]
  - Injection site rash [Unknown]
  - Body temperature decreased [Unknown]
  - Blood pressure abnormal [Unknown]
  - Nausea [Unknown]
  - Headache [Recovering/Resolving]
  - Dizziness [Recovering/Resolving]

NARRATIVE: CASE EVENT DATE: 20210629
